FAERS Safety Report 5796698-6 (Version None)
Quarter: 2008Q2

REPORT INFORMATION
  Report Type: 
  Country: None (occurrence: None)
  Receive Date: 20080627
  Receipt Date: 20080620
  Transmission Date: 20081010
  Serious: Yes (Hospitalization)
  Sender: FDA-Public Use
  Company Number: 2008SP012319

PATIENT
  Age: 50 Year
  Sex: Female

DRUGS (2)
  1. PEG-INTRON [Suspect]
     Indication: HEPATITIS C
     Dosage: SC
     Route: 058
     Dates: start: 20071116, end: 20080301
  2. RIBASPHERE [Suspect]
     Indication: HEPATITIS C
     Dates: start: 20071116, end: 20080301

REACTIONS (10)
  - ABNORMAL BEHAVIOUR [None]
  - ALOPECIA [None]
  - DIZZINESS [None]
  - DRUG EFFECT DECREASED [None]
  - DRY SKIN [None]
  - EYE SWELLING [None]
  - FATIGUE [None]
  - MEMORY IMPAIRMENT [None]
  - OEDEMA PERIPHERAL [None]
  - THYROID DISORDER [None]
